FAERS Safety Report 17787349 (Version 1)
Quarter: 2020Q2

REPORT INFORMATION
  Report Type: Spontaneous
  Country: US (occurrence: US)
  Receive Date: 20200514
  Receipt Date: 20200514
  Transmission Date: 20200714
  Serious: No
  Sender: FDA-Public Use
  Company Number: US-BAYER-2020-071014

PATIENT
  Sex: Female

DRUGS (4)
  1. GINGER [ZINGIBER OFFICINALE RHIZOME] [Concomitant]
     Active Substance: GINGER
  2. TIMOLOL. [Concomitant]
     Active Substance: TIMOLOL
  3. ALEVE [Suspect]
     Active Substance: NAPROXEN SODIUM
     Dosage: 500 MG, UNK
  4. UBRELVY [Concomitant]
     Active Substance: UBROGEPANT
     Dosage: 100 MG, UNK

REACTIONS (1)
  - Product use in unapproved indication [None]
